FAERS Safety Report 7542400-7 (Version None)
Quarter: 2011Q2

REPORT INFORMATION
  Report Type: 
  Country: None (occurrence: None)
  Receive Date: 20110524
  Receipt Date: 20090529
  Transmission Date: 20111010
  Serious: No
  Sender: FDA-Public Use
  Company Number: 8038499

PATIENT
  Sex: Female
  Weight: 56.6996 kg

DRUGS (1)
  1. CIMZIA [Suspect]
     Indication: CROHN'S DISEASE
     Dosage: SUBCUTANEOUS
     Route: 058
     Dates: start: 20081014

REACTIONS (3)
  - CROHN'S DISEASE [None]
  - DRUG EXPOSURE DURING PREGNANCY [None]
  - DRUG INEFFECTIVE [None]
